FAERS Safety Report 17412174 (Version 1)
Quarter: 2020Q1

REPORT INFORMATION
  Report Type: Spontaneous
  Country: US (occurrence: US)
  Receive Date: 20200213
  Receipt Date: 20200213
  Transmission Date: 20200409
  Serious: Yes (Hospitalization, Other)
  Sender: FDA-Public Use
  Company Number: US-QUAGEN PHARMA LLC-2020QUALIT00025

PATIENT
  Age: 59 Year
  Sex: Female

DRUGS (2)
  1. PROPYLTHIOURACIL TABLETS USP [Suspect]
     Active Substance: PROPYLTHIOURACIL
  2. SOLU-MEDROL [Interacting]
     Active Substance: METHYLPREDNISOLONE SODIUM SUCCINATE

REACTIONS (4)
  - Proteinuria [Recovering/Resolving]
  - Pulmonary renal syndrome [Recovering/Resolving]
  - Chest pain [Recovering/Resolving]
  - Vasculitis [Recovering/Resolving]
